FAERS Safety Report 7393638-3 (Version None)
Quarter: 2011Q1

REPORT INFORMATION
  Report Type: 
  Country: None (occurrence: None)
  Receive Date: 20110331
  Receipt Date: 20110331
  Transmission Date: 20110831
  Serious: Yes (Other)
  Sender: FDA-Public Use
  Company Number: None

PATIENT
  Age: 24 Year
  Sex: Female
  Weight: 48.0813 kg

DRUGS (1)
  1. ICY HOT MAXIMUM CHATTEM [Suspect]
     Indication: MYALGIA
     Dosage: JUST ROLL ON DAILY UNK
     Dates: start: 20110327, end: 20110328

REACTIONS (2)
  - ERYTHEMA [None]
  - SKIN IRRITATION [None]
